FAERS Safety Report 19004208 (Version 2)
Quarter: 2021Q1

REPORT INFORMATION
  Report Type: Report from Study
  Country: US (occurrence: US)
  Receive Date: 20210312
  Receipt Date: 20210326
  Transmission Date: 20210420
  Serious: Yes (Death)
  Sender: FDA-Public Use
  Company Number: US-TAIHO ONCOLOGY  INC-EU-2021-00715

PATIENT

DRUGS (19)
  1. MAGNESIUM OXIDE. [Concomitant]
     Active Substance: MAGNESIUM OXIDE
  2. LISINOPRIL. [Concomitant]
     Active Substance: LISINOPRIL
  3. CIMETIDINE [Concomitant]
     Active Substance: CIMETIDINE
  4. GABAPENTIN. [Concomitant]
     Active Substance: GABAPENTIN
  5. CLOBETASOL [Concomitant]
     Active Substance: CLOBETASOL
  6. INSULIN ASPART [Concomitant]
     Active Substance: INSULIN ASPART
  7. LEVOTHYROXINE. [Concomitant]
     Active Substance: LEVOTHYROXINE
  8. SITAGLIPTIN [Concomitant]
     Active Substance: SITAGLIPTIN
  9. INSULIN GLARGINE [Concomitant]
     Active Substance: INSULIN GLARGINE
  10. DIPHENHYDRAMINE. [Concomitant]
     Active Substance: DIPHENHYDRAMINE
  11. ONDANSETRON [Concomitant]
     Active Substance: ONDANSETRON
  12. PREDNISONE. [Concomitant]
     Active Substance: PREDNISONE
  13. OLANZAPINE. [Concomitant]
     Active Substance: OLANZAPINE
  14. TAS?102 [Suspect]
     Active Substance: TIPIRACIL HYDROCHLORIDE\TRIFLURIDINE
     Indication: COLORECTAL ADENOCARCINOMA
     Dosage: CURRENT CYCLE UNKNOWN
     Route: 048
     Dates: start: 20210121
  15. HALOPERIDOL. [Concomitant]
     Active Substance: HALOPERIDOL
  16. MORPHINE [Concomitant]
     Active Substance: MORPHINE
  17. METFORMIN [Concomitant]
     Active Substance: METFORMIN HYDROCHLORIDE
  18. ALBUTEROL. [Concomitant]
     Active Substance: ALBUTEROL
  19. ACYCLOVIR. [Concomitant]
     Active Substance: ACYCLOVIR

REACTIONS (1)
  - Death [Fatal]

NARRATIVE: CASE EVENT DATE: 20210218
